FAERS Safety Report 6718420-9 (Version None)
Quarter: 2010Q2

REPORT INFORMATION
  Report Type: 
  Country: None (occurrence: None)
  Receive Date: 20100504
  Receipt Date: 20100416
  Transmission Date: 20101027
  Serious: Yes (Other)
  Sender: FDA-Public Use
  Company Number: 2010-1294

PATIENT
  Age: 48 Year
  Sex: Male

DRUGS (1)
  1. DYSPORT [Suspect]
     Indication: SKIN COSMETIC PROCEDURE
     Dosage: SINGLE CYCLE

REACTIONS (2)
  - BLINDNESS UNILATERAL [None]
  - PERIORBITAL HAEMATOMA [None]
